FAERS Safety Report 9157796 (Version 1)
Quarter: 2013Q1

REPORT INFORMATION
  Report Type: Spontaneous
  Country: DK (occurrence: None)
  Receive Date: 20130213
  Receipt Date: 20130213
  Transmission Date: 20140127
  Serious: Yes (Hospitalization, Other)
  Sender: FDA-Public Use
  Company Number: 2013MA000991

PATIENT
  Age: 36 Year
  Sex: Female

DRUGS (2)
  1. FLUOXETINE [Suspect]
     Indication: MENTAL DISORDER
     Route: 048
     Dates: start: 2008, end: 2008
  2. CITALOPRAM [Concomitant]

REACTIONS (6)
  - Personality change [None]
  - Feeling abnormal [None]
  - Anger [None]
  - Disinhibition [None]
  - Disturbance in attention [None]
  - Confusional state [None]
